FAERS Safety Report 6185993-7 (Version None)
Quarter: 2009Q2

REPORT INFORMATION
  Report Type: 
  Country: None (occurrence: None)
  Receive Date: 20090511
  Receipt Date: 20090417
  Transmission Date: 20091009
  Serious: Yes (Other)
  Sender: FDA-Public Use
  Company Number: US-PFIZER INC-2008002015

PATIENT
  Sex: Female

DRUGS (10)
  1. CHANTIX [Suspect]
  2. SPIRIVA [Suspect]
  3. ADVAIR HFA [Suspect]
  4. ALBUTEROL [Suspect]
     Route: 055
  5. SEROQUEL [Concomitant]
  6. NORVASC [Concomitant]
  7. LIPITOR [Concomitant]
  8. TRAMADOL HCL [Concomitant]
  9. CITALOPRAM HYDROBROMIDE [Concomitant]
  10. FLUCONAZOLE [Concomitant]

REACTIONS (5)
  - ABDOMINAL DISCOMFORT [None]
  - FUNGAL INFECTION [None]
  - LARYNGITIS [None]
  - NAUSEA [None]
  - VOMITING [None]
